FAERS Safety Report 8058906-0 (Version None)
Quarter: 2012Q1

REPORT INFORMATION
  Report Type: 
  Country: None (occurrence: None)
  Receive Date: 20120120
  Receipt Date: 20111209
  Transmission Date: 20120608
  Serious: Yes (Other)
  Sender: FDA-Public Use
  Company Number: US-BRISTOL-MYERS SQUIBB COMPANY-16130163

PATIENT
  Age: 48 Year
  Sex: Female

DRUGS (5)
  1. PREDNISONE [Concomitant]
  2. SYNTHROID [Concomitant]
  3. AMBIEN [Concomitant]
  4. YERVOY [Suspect]
     Indication: METASTATIC MALIGNANT MELANOMA
     Dosage: THERAPY DATES:02SEP11,22SEP11,08NOV2011,24NOV2011
     Route: 042
     Dates: start: 20110902
  5. ATIVAN [Concomitant]

REACTIONS (1)
  - LYMPHOCYTIC HYPOPHYSITIS [None]
